FAERS Safety Report 13522257 (Version 2)
Quarter: 2017Q2

REPORT INFORMATION
  Report Type: Spontaneous
  Country: CO (occurrence: CO)
  Receive Date: 20170508
  Receipt Date: 20170515
  Transmission Date: 20170830
  Serious: Yes (Other)
  Sender: FDA-Public Use
  Company Number: CO-ASTELLAS-2017US016693

PATIENT
  Age: 56 Year
  Sex: Male

DRUGS (1)
  1. TACROLIMUS. [Suspect]
     Active Substance: TACROLIMUS
     Indication: HEART TRANSPLANT
     Dosage: UNK UNK, UNKNOWN FREQ.
     Route: 065

REACTIONS (11)
  - Toxicity to various agents [Unknown]
  - Abnormal behaviour [Unknown]
  - Immunosuppressant drug level increased [Recovered/Resolved]
  - Progressive multifocal leukoencephalopathy [Unknown]
  - Infection [Unknown]
  - Intracranial aneurysm [Unknown]
  - Central nervous system infection [Unknown]
  - Brain injury [Unknown]
  - Cerebrovascular accident [Unknown]
  - Post herpetic neuralgia [Unknown]
  - Thalamic infarction [Unknown]
